FAERS Safety Report 5662880-1 (Version None)
Quarter: 2008Q1

REPORT INFORMATION
  Report Type: 
  Country: None (occurrence: None)
  Receive Date: 20080313
  Receipt Date: 20080311
  Transmission Date: 20080703
  Serious: Yes (Other)
  Sender: FDA-Public Use
  Company Number: JP-ASTRAZENECA-2008AP01390

PATIENT
  Age: 8 Month
  Sex: Male
  Weight: 11 kg

DRUGS (11)
  1. MEROPENEM [Suspect]
     Indication: MENINGITIS BACTERIAL
     Route: 042
     Dates: start: 20050111, end: 20050127
  2. ROCEPHIN [Suspect]
     Route: 042
     Dates: start: 20050111, end: 20050121
  3. GLYCEOL [Concomitant]
     Route: 042
     Dates: start: 20050111, end: 20050118
  4. DECADRON [Concomitant]
     Dates: start: 20050111, end: 20050114
  5. FOY [Concomitant]
     Route: 042
     Dates: start: 20050111, end: 20050122
  6. DORMICUM [Concomitant]
     Route: 042
     Dates: start: 20050111, end: 20050114
  7. MEYLON [Concomitant]
     Route: 042
     Dates: start: 20050111, end: 20050112
  8. PHENOBARBITAL TAB [Concomitant]
     Route: 048
     Dates: start: 20050111, end: 20050131
  9. TAGAMET [Concomitant]
     Route: 042
     Dates: start: 20050112, end: 20050117
  10. LASIX [Concomitant]
     Dates: start: 20050115, end: 20050118
  11. CLARITHROMYCIN [Concomitant]
     Route: 048
     Dates: start: 20050117, end: 20050125

REACTIONS (1)
  - HEPATIC FUNCTION ABNORMAL [None]
